FAERS Safety Report 5941477-X (Version None)
Quarter: 2008Q4

REPORT INFORMATION
  Report Type: 
  Country: None (occurrence: None)
  Receive Date: 20081103
  Receipt Date: 20081103
  Transmission Date: 20090506
  Serious: Yes (Life-Threatening)
  Sender: FDA-Public Use
  Company Number: None

PATIENT
  Sex: Male
  Weight: 74.3899 kg

DRUGS (1)
  1. RITUXAN [Suspect]
     Indication: LYMPHOMA
     Dosage: 700 MG Q 3 WEEKS IV DRIP
     Route: 041
     Dates: start: 20080609, end: 20080923

REACTIONS (2)
  - INFECTION [None]
  - NEUTROPENIA [None]
